FAERS Safety Report 6424141-2 (Version None)
Quarter: 2009Q4

REPORT INFORMATION
  Report Type: 
  Country: None (occurrence: None)
  Receive Date: 20091102
  Receipt Date: 20091022
  Transmission Date: 20100525
  Serious: Yes (Other)
  Sender: FDA-Public Use
  Company Number: US-CELGENEUS-163-20785-09102037

PATIENT
  Sex: Female

DRUGS (3)
  1. THALOMID [Suspect]
     Indication: MULTIPLE MYELOMA
     Route: 048
     Dates: start: 20070201
  2. THALOMID [Suspect]
     Route: 048
     Dates: start: 20060601
  3. THALOMID [Suspect]
     Route: 048
     Dates: start: 20060501

REACTIONS (1)
  - MYELODYSPLASTIC SYNDROME [None]
